FAERS Safety Report 6769309-0 (Version None)
Quarter: 2010Q2

REPORT INFORMATION
  Report Type: 
  Country: None (occurrence: None)
  Receive Date: 20100615
  Receipt Date: 20100608
  Transmission Date: 20101027
  Serious: Yes (Hospitalization)
  Sender: FDA-Public Use
  Company Number: CA-JNJFOC-20100602546

PATIENT
  Age: 74 Year
  Sex: Male

DRUGS (7)
  1. SPORANOX [Suspect]
     Indication: DRUG USE FOR UNKNOWN INDICATION
     Route: 065
  2. LIPITOR [Suspect]
     Indication: DRUG USE FOR UNKNOWN INDICATION
     Route: 048
  3. ACETYLSALICYLIC ACID [Concomitant]
  4. ATENOLOL [Concomitant]
  5. HYDROCHLOROTHIAZIDE [Concomitant]
  6. NORVASC [Concomitant]
  7. OXAZEPAM [Concomitant]

REACTIONS (6)
  - DRUG INTERACTION [None]
  - HYPOTENSION [None]
  - PURPURA [None]
  - RASH [None]
  - RESPIRATORY DISTRESS [None]
  - RHABDOMYOLYSIS [None]
